FAERS Safety Report 17464092 (Version 1)
Quarter: 2020Q1

REPORT INFORMATION
  Report Type: Spontaneous
  Country: US (occurrence: US)
  Receive Date: 20200226
  Receipt Date: 20200226
  Transmission Date: 20200409
  Serious: Yes (Death)
  Sender: FDA-Public Use
  Company Number: US-ROCHE-2558036

PATIENT
  Age: 60 Year
  Sex: Female

DRUGS (2)
  1. CEPHALEXIN [CEFALEXIN] [Concomitant]
     Active Substance: CEPHALEXIN
  2. ALECENSA [Suspect]
     Active Substance: ALECTINIB HYDROCHLORIDE
     Indication: LUNG NEOPLASM MALIGNANT
     Dosage: 4 CAPS, CAPSULE 150 CAP
     Route: 065
     Dates: start: 20190801, end: 20200107

REACTIONS (1)
  - Death [Fatal]

NARRATIVE: CASE EVENT DATE: 20200107
